FAERS Safety Report 9620050 (Version 1)
Quarter: 2013Q4

REPORT INFORMATION
  Report Type: Spontaneous
  Country: US (occurrence: US)
  Receive Date: 20131014
  Receipt Date: 20131014
  Transmission Date: 20140711
  Serious: No
  Sender: FDA-Public Use
  Company Number: US-B.I. PHARMACEUTICALS,INC./RIDGEFIELD-2013-BI-31280BP

PATIENT
  Age: 72 Year
  Sex: Female

DRUGS (6)
  1. COMBIVENT [Suspect]
     Indication: CHRONIC OBSTRUCTIVE PULMONARY DISEASE
     Dosage: DOSE PER APPLICATION: 20 MCG / 100 MCG; DAILY DOSE: 80 MCG/ 400 MCG
     Route: 055
     Dates: start: 20130928
  2. PRAVASTATIN [Concomitant]
     Route: 048
  3. NIASPAN [Concomitant]
     Route: 048
  4. MIRTAVAPINE [Concomitant]
     Route: 048
  5. CITALOPRAM [Concomitant]
     Route: 048
  6. HYDROCODONE [Concomitant]
     Route: 048

REACTIONS (2)
  - Fall [Recovered/Resolved]
  - Clavicle fracture [Not Recovered/Not Resolved]
